FAERS Safety Report 9003295 (Version 3)
Quarter: 2013Q1

REPORT INFORMATION
  Report Type: Spontaneous
  Country: US (occurrence: US)
  Receive Date: 20130108
  Receipt Date: 20130313
  Transmission Date: 20140127
  Serious: Yes (Hospitalization)
  Sender: FDA-Public Use
  Company Number: US-AMGEN-USASP2012084292

PATIENT
  Age: 51 Year
  Sex: Female
  Weight: 78.46 kg

DRUGS (5)
  1. NEUPOGEN [Suspect]
     Indication: COLORECTAL CANCER
     Dosage: UNK
     Route: 058
     Dates: start: 20120628, end: 20120628
  2. AVASTIN                            /01555201/ [Suspect]
     Indication: COLORECTAL CANCER
     Dosage: UNK UNK, ONCE IN TWO WEEKS
     Route: 042
     Dates: start: 201204
  3. AVASTIN                            /01555201/ [Suspect]
     Dosage: UNK UNK, Q2WK
     Route: 042
     Dates: start: 201205
  4. FLUOROURACIL [Suspect]
     Indication: COLORECTAL CANCER
     Dosage: UNK UNK, ONCE IN TWO WEEKS
     Route: 042
     Dates: start: 201205
  5. OXALIPLATIN [Suspect]
     Indication: COLORECTAL CANCER
     Dosage: UNK UNK, 1 IN 2 WEEKS
     Route: 042
     Dates: start: 201205

REACTIONS (6)
  - Pain in extremity [Not Recovered/Not Resolved]
  - Back pain [Not Recovered/Not Resolved]
  - Neutrophil count abnormal [Recovered/Resolved]
  - Hypertension [Not Recovered/Not Resolved]
  - White blood cell count abnormal [Recovered/Resolved]
  - Fatigue [Not Recovered/Not Resolved]
